FAERS Safety Report 6992200-1 (Version None)
Quarter: 2010Q3

REPORT INFORMATION
  Report Type: 
  Country: None (occurrence: None)
  Receive Date: 20100917
  Receipt Date: 20100913
  Transmission Date: 20110219
  Serious: Yes (Other)
  Sender: FDA-Public Use
  Company Number: US-BRISTOL-MYERS SQUIBB COMPANY-15284383

PATIENT
  Age: 66 Year
  Sex: Male
  Weight: 91 kg

DRUGS (4)
  1. CETUXIMAB [Suspect]
     Indication: NON-SMALL CELL LUNG CANCER
     Dosage: RECEIVED A DOSE ON 28JUN10
  2. TAXOL [Suspect]
     Indication: NON-SMALL CELL LUNG CANCER
     Dosage: RECEIVED A DOSE ON 28JUN10,02AUG10
  3. CARBOPLATIN [Suspect]
     Indication: NON-SMALL CELL LUNG CANCER
     Dosage: RECEIVED A DOSE ON 28JUN10,02AUG10
  4. RADIATION THERAPY [Suspect]
     Indication: NON-SMALL CELL LUNG CANCER
     Dosage: 1DF=74GY LAST DOSE:09JUN10 NO OF FRACTIONS:37 NO OF ELAPSED DAYS:51

REACTIONS (1)
  - THROMBOCYTOPENIA [None]
